FAERS Safety Report 10783621 (Version 3)
Quarter: 2015Q2

REPORT INFORMATION
  Report Type: Spontaneous
  Country: US (occurrence: US)
  Receive Date: 20150210
  Receipt Date: 20150529
  Transmission Date: 20150821
  Serious: Yes (Other)
  Sender: FDA-Public Use
  Company Number: US-BAYER-2015-020064

PATIENT
  Age: 25 Year
  Sex: Female
  Weight: 76.19 kg

DRUGS (10)
  1. CLEOCIN [Concomitant]
     Active Substance: CLINDAMYCIN PHOSPHATE
     Dosage: 300 MG EVERY 6 HOURS
     Dates: start: 20111205
  2. PERCOCET [Concomitant]
     Active Substance: ACETAMINOPHEN\OXYCODONE HYDROCHLORIDE
  3. MIRENA [Suspect]
     Active Substance: LEVONORGESTREL
     Dosage: 20 MCG/24HR, CONT
     Route: 015
     Dates: start: 20070815, end: 20121203
  4. FLEXERIL [Concomitant]
     Active Substance: CYCLOBENZAPRINE HYDROCHLORIDE
     Dosage: 10 MG EVERY 8 HOURS AS NEEDED
     Dates: start: 20111202
  5. TRAMADOL [Concomitant]
     Active Substance: TRAMADOL
     Dosage: 50 MG 1-2 EVERY 6 HOURS AS NEEDED
     Dates: start: 20111125
  6. MIRALAX [Concomitant]
     Active Substance: POLYETHYLENE GLYCOL 3350
     Indication: CONSTIPATION
     Route: 048
  7. ULTRAM [Concomitant]
     Active Substance: TRAMADOL HYDROCHLORIDE
     Dosage: 50 MG 1-2 EVERY 6 HOURS AS NEEDED
     Dates: start: 20111202
  8. ZOLOFT [Concomitant]
     Active Substance: SERTRALINE HYDROCHLORIDE
  9. IBUPROFEN. [Concomitant]
     Active Substance: IBUPROFEN
  10. NAPROXEN. [Concomitant]
     Active Substance: NAPROXEN
     Dosage: 500 MG EVERY 12 HOURS AS NEEDED
     Dates: start: 20111202

REACTIONS (18)
  - Rectal injury [None]
  - Off label use of device [None]
  - Pelvic pain [None]
  - Fear [None]
  - Uterine perforation [None]
  - Emotional distress [None]
  - Abdominal pain [None]
  - Device issue [None]
  - Device breakage [None]
  - Device misuse [None]
  - Internal injury [None]
  - Medical device discomfort [None]
  - Anxiety [None]
  - Genital haemorrhage [None]
  - Injury [None]
  - Gastrointestinal injury [None]
  - Depression [None]
  - Depressed mood [None]

NARRATIVE: CASE EVENT DATE: 20070823
